FAERS Safety Report 23256892 (Version 1)
Quarter: 2023Q4

REPORT INFORMATION
  Report Type: Report from Study
  Country: CA (occurrence: CA)
  Receive Date: 20231204
  Receipt Date: 20231204
  Transmission Date: 20240110
  Serious: Yes (Other)
  Sender: FDA-Public Use
  Company Number: CA-Vifor (International) Inc.-VIT-2023-09389

PATIENT
  Age: 57 Year
  Sex: Female

DRUGS (1)
  1. AVACOPAN [Suspect]
     Active Substance: AVACOPAN
     Indication: Rheumatoid vasculitis
     Dosage: 30 MILLIGRAM, QD
     Route: 048

REACTIONS (3)
  - Rash [Recovering/Resolving]
  - Malaise [Recovering/Resolving]
  - Off label use [Unknown]
